FAERS Safety Report 13301344 (Version 2)
Quarter: 2017Q2

REPORT INFORMATION
  Report Type: Spontaneous
  Country: US (occurrence: US)
  Receive Date: 20170307
  Receipt Date: 20170421
  Transmission Date: 20170830
  Serious: No
  Sender: FDA-Public Use
  Company Number: US-PFIZER INC-2017096286

PATIENT

DRUGS (1)
  1. SOLU-MEDROL [Suspect]
     Active Substance: METHYLPREDNISOLONE SODIUM SUCCINATE
     Dosage: 1 G, UNK (MIXED WITH SALINE)

REACTIONS (4)
  - Nausea [Unknown]
  - Flushing [Unknown]
  - Hypersensitivity [Unknown]
  - Pain [Unknown]
